FAERS Safety Report 9796540 (Version 4)
Quarter: 2014Q2

REPORT INFORMATION
  Report Type: Spontaneous
  Country: US (occurrence: US)
  Receive Date: 20140103
  Receipt Date: 20140529
  Transmission Date: 20141212
  Serious: Yes (Disabling)
  Sender: FDA-Public Use
  Company Number: US-009507513-1104USA02985

PATIENT
  Sex: Male

DRUGS (1)
  1. PROPECIA [Suspect]
     Indication: ANDROGENETIC ALOPECIA
     Dosage: 1 MG, QD
     Route: 048
     Dates: start: 20090106, end: 20090325

REACTIONS (11)
  - Emotional distress [Unknown]
  - Erectile dysfunction [Unknown]
  - Anxiety [Not Recovered/Not Resolved]
  - Attention deficit/hyperactivity disorder [Not Recovered/Not Resolved]
  - Bronchitis [Unknown]
  - Hypogonadism [Unknown]
  - Ligament sprain [Unknown]
  - Injury [Unknown]
  - Libido decreased [Unknown]
  - Blood testosterone decreased [Unknown]
  - Benign prostatic hyperplasia [Unknown]
